FAERS Safety Report 7716714-1 (Version None)
Quarter: 2011Q3

REPORT INFORMATION
  Report Type: 
  Country: None (occurrence: None)
  Receive Date: 20110829
  Receipt Date: 20110817
  Transmission Date: 20111222
  Serious: No
  Sender: FDA-Public Use
  Company Number: US-B.I. PHARMACEUTICALS,INC./RIDGEFIELD-2011-BP-20221BP

PATIENT
  Age: 84 Year
  Sex: Female

DRUGS (4)
  1. PREMARIN [Concomitant]
     Route: 048
  2. PRADAXA [Suspect]
     Indication: ATRIAL FIBRILLATION
     Dosage: 300 MG
     Route: 048
     Dates: end: 20110812
  3. PREDNISONE [Concomitant]
     Indication: TEMPORAL ARTERITIS
     Route: 048
  4. RANITIDINE [Concomitant]
     Indication: DYSPEPSIA
     Route: 048

REACTIONS (2)
  - NAUSEA [None]
  - FREQUENT BOWEL MOVEMENTS [None]
